FAERS Safety Report 7051370-X (Version None)
Quarter: 2010Q4

REPORT INFORMATION
  Report Type: 
  Country: None (occurrence: None)
  Receive Date: 20101019
  Receipt Date: 20101014
  Transmission Date: 20110411
  Serious: Yes (Other)
  Sender: FDA-Public Use
  Company Number: JP-B.I. PHARMACEUTICALS,INC./RIDGEFIELD-2010-DE-05063BY

PATIENT
  Sex: Male

DRUGS (16)
  1. MICARDIS [Suspect]
     Indication: HYPERTENSION
     Dosage: 40 MG
     Route: 048
     Dates: start: 20081009, end: 20081128
  2. DEPAS [Suspect]
     Indication: ANXIETY
     Dosage: 2 MG
     Route: 048
     Dates: start: 20081009, end: 20081128
  3. DEPAS [Suspect]
     Dosage: 2 MG
     Route: 048
     Dates: start: 20081201
  4. ASPIRIN [Suspect]
     Indication: ILL-DEFINED DISORDER
     Dosage: 100 MG
     Route: 048
     Dates: start: 20081009, end: 20081128
  5. ASPIRIN [Suspect]
     Dosage: 100 MG
     Route: 048
     Dates: start: 20081218
  6. LASIX [Suspect]
     Indication: PROPHYLAXIS
     Dosage: 20 MG
     Route: 048
     Dates: start: 20081009, end: 20081128
  7. LASIX [Suspect]
     Dosage: 20 MG
     Route: 048
     Dates: start: 20081218
  8. HERBESSER R [Suspect]
     Indication: HYPERTENSION
     Dosage: 100 MG
     Route: 048
     Dates: start: 20081009, end: 20081128
  9. ALDACTONE [Suspect]
     Indication: PROPHYLAXIS
     Dosage: 25 MG
     Route: 048
     Dates: start: 20081009, end: 20081128
  10. LIPITOR [Suspect]
     Indication: LIPIDS INCREASED
     Dosage: 10 MG
     Route: 048
     Dates: start: 20081009, end: 20081128
  11. ITOROL [Suspect]
     Indication: CORONARY ARTERY DILATATION
     Dosage: 40 MG
     Route: 048
     Dates: start: 20081009, end: 20081028
  12. ITOROL [Suspect]
     Dosage: 20 MG
     Route: 048
     Dates: start: 20081210
  13. WARFARIN SODIUM [Suspect]
     Indication: ANTICOAGULANT THERAPY
     Dosage: 1 MG
     Route: 048
     Dates: start: 20081009, end: 20081128
  14. WARFARIN SODIUM [Suspect]
     Dosage: 4 MG
     Route: 048
     Dates: start: 20081202
  15. GASTER D [Concomitant]
     Dates: start: 20081009, end: 20081128
  16. MAGMITT [Concomitant]
     Dates: start: 20081009, end: 20081128

REACTIONS (1)
  - HEPATITIS ACUTE [None]
